FAERS Safety Report 5125101-4 (Version None)
Quarter: 2006Q4

REPORT INFORMATION
  Report Type: 
  Country: None (occurrence: None)
  Receive Date: 20061010
  Receipt Date: 20061010
  Transmission Date: 20070319
  Serious: Yes (Other)
  Sender: FDA-Public Use
  Company Number: None

PATIENT

DRUGS (1)
  1. CORGARD [Suspect]
     Indication: MIGRAINE PROPHYLAXIS
     Dosage: 40 MG BID PO [LIFETIME]
     Route: 048
     Dates: start: 19961201, end: 20061001

REACTIONS (3)
  - HEADACHE [None]
  - NAUSEA [None]
  - PHARMACEUTICAL PRODUCT COMPLAINT [None]
